FAERS Safety Report 5965087-3 (Version None)
Quarter: 2008Q4

REPORT INFORMATION
  Report Type: 
  Country: None (occurrence: None)
  Receive Date: 20081125
  Receipt Date: 20081118
  Transmission Date: 20090506
  Serious: Yes (Death, Other)
  Sender: FDA-Public Use
  Company Number: PHHY2008CA28279

PATIENT
  Sex: Male

DRUGS (3)
  1. CLOZARIL [Suspect]
     Indication: SCHIZOPHRENIA, PARANOID TYPE
     Dosage: 200 MG AM + 300 MG HS
     Dates: start: 20020710, end: 20081004
  2. CLOZARIL [Suspect]
     Dosage: 50 MG PRN
  3. CELEXA [Suspect]
     Dosage: 20 MG AM
     Route: 048

REACTIONS (5)
  - AORTIC STENOSIS [None]
  - CARDIAC ARREST [None]
  - MYOCARDIAL INFARCTION [None]
  - PNEUMONIA [None]
  - SYNCOPE [None]
